FAERS Safety Report 20035084 (Version 1)
Quarter: 2021Q4

REPORT INFORMATION
  Report Type: Spontaneous
  Country: HU (occurrence: HU)
  Receive Date: 20211104
  Receipt Date: 20211104
  Transmission Date: 20220303
  Serious: Yes (Other)
  Sender: FDA-Public Use
  Company Number: HU-AMGEN-HUNSP2021170375

PATIENT
  Age: 57 Year
  Sex: Male

DRUGS (2)
  1. ROMIPLOSTIM [Suspect]
     Active Substance: ROMIPLOSTIM
     Indication: Thrombocytopenia
     Dosage: 1000 MICROGRAM
     Route: 058
     Dates: start: 200911
  2. ROMIPLOSTIM [Suspect]
     Active Substance: ROMIPLOSTIM
     Indication: Off label use

REACTIONS (3)
  - Thrombocytosis [Unknown]
  - Drug effective for unapproved indication [Unknown]
  - Off label use [Unknown]
